FAERS Safety Report 5899544-5 (Version None)
Quarter: 2008Q3

REPORT INFORMATION
  Report Type: 
  Country: None (occurrence: None)
  Receive Date: 20080925
  Receipt Date: 20080925
  Transmission Date: 20090109
  Serious: Yes (Death)
  Sender: FDA-Public Use
  Company Number: None

PATIENT
  Age: 72 Year
  Sex: Male
  Weight: 36.2878 kg

DRUGS (8)
  1. PROFILNINE [Suspect]
     Indication: ANAEMIA
     Dosage: 4020 UNITS -50 UNITS/KG- ONCE IV BOLUS
     Route: 040
     Dates: start: 20080916, end: 20080916
  2. PROFILNINE [Suspect]
  3. DESMOPRESSIN ACETATE [Concomitant]
  4. VITAMIN K TAB [Concomitant]
  5. VANCOMYCIN HYDROCHLORIDE [Concomitant]
  6. LEVAQUIN [Concomitant]
  7. ZOSYN [Concomitant]
  8. FENTANYL [Concomitant]

REACTIONS (5)
  - BRADYCARDIA [None]
  - INTRACARDIAC THROMBUS [None]
  - POST PROCEDURAL COMPLICATION [None]
  - PULSE ABSENT [None]
  - VENTRICULAR FIBRILLATION [None]
